FAERS Safety Report 18182322 (Version 1)
Quarter: 2020Q3

REPORT INFORMATION
  Report Type: Spontaneous
  Country: GB (occurrence: GB)
  Receive Date: 20200821
  Receipt Date: 20200821
  Transmission Date: 20201103
  Serious: Yes (Hospitalization)
  Sender: FDA-Public Use
  Company Number: GB-TEVA-2020-GB-1816117

PATIENT
  Age: 81 Year
  Sex: Female

DRUGS (11)
  1. CLOPIDOGREL [Concomitant]
     Active Substance: CLOPIDOGREL BISULFATE
     Dosage: 75 MILLIGRAM DAILY; IN THE MORNING
  2. ATORVASTATIN [Concomitant]
     Active Substance: ATORVASTATIN
     Dosage: 60 MILLIGRAM DAILY; 40MG + 20MG; AT NIGHT,
  3. TRIMETHOPRIM. [Suspect]
     Active Substance: TRIMETHOPRIM
     Dosage: 6 TABLET, UNIT DOSE: 400 MG
     Route: 065
  4. FOLIC ACID. [Concomitant]
     Active Substance: FOLIC ACID
     Dosage: ONE TO BE TAKEN EACH MORNING EXCEPT THURSDAYS, UNIT DOSE: 5 MG
  5. COCODAMOL [Concomitant]
     Active Substance: ACETAMINOPHEN\CODEINE PHOSPHATE
     Dosage: ONE OR TWO TO BE TAKEN FOUR TIMES A DAY WHEN REQUIRED
  6. ADCAL?D3 [Concomitant]
     Active Substance: CALCIUM CARBONATE\CHOLECALCIFEROL
     Dosage: IN THE MORNING AND AT TEATIME, UNIT DOSE: 2 DOSAGE FORMS
  7. FERROUS SULFATE. [Concomitant]
     Active Substance: FERROUS SULFATE
     Dosage: IN THE MORNING AND AT TEA, UNIT DOSE: 400 MG
  8. PREGABALIN. [Concomitant]
     Active Substance: PREGABALIN
     Dosage: 25 MILLIGRAM DAILY; TO BE TAKEN AT NIGHT
  9. ENALAPRIL [Suspect]
     Active Substance: ENALAPRIL
     Dosage: 20 MG
     Route: 065
  10. METHOTREXATE. [Concomitant]
     Active Substance: METHOTREXATE
     Dosage: 20 MG
  11. SULFASALAZINE. [Concomitant]
     Active Substance: SULFASALAZINE
     Dosage: IN THE MORNING AND AT TEATIME, UNIT DOSE: 2000 MG

REACTIONS (2)
  - Acute kidney injury [Unknown]
  - Vomiting [Unknown]
